FAERS Safety Report 9553445 (Version 1)
Quarter: 2013Q2

REPORT INFORMATION
  Report Type: Spontaneous
  Country: US (occurrence: None)
  Receive Date: 20130426
  Receipt Date: 20130426
  Transmission Date: 20140414
  Serious: Yes (Hospitalization)
  Sender: FDA-Public Use
  Company Number: 2012AM006403

PATIENT
  Age: 1 Day
  Sex: Female
  Weight: 4.06 kg

DRUGS (1)
  1. SYMLINPEN [Suspect]
     Route: 058
     Dates: start: 20110222, end: 20110630

REACTIONS (4)
  - Hypoglycaemia neonatal [None]
  - Dyspnoea [None]
  - Jaundice [None]
  - Foetal exposure during pregnancy [None]
